FAERS Safety Report 8491863-1 (Version None)
Quarter: 2012Q3

REPORT INFORMATION
  Report Type: 
  Country: None (occurrence: None)
  Receive Date: 20120706
  Receipt Date: 20110817
  Transmission Date: 20120928
  Serious: No
  Sender: FDA-Public Use
  Company Number: US-GLAXOSMITHKLINE-A0941366A

PATIENT
  Sex: Male

DRUGS (5)
  1. FLOVENT [Suspect]
     Indication: LUNG DISORDER
     Dosage: 1PUFF PER DAY
     Route: 055
     Dates: start: 20060101, end: 20060101
  2. DILTIAZEM HYDROCHOLORIDE [Concomitant]
  3. POTASSIUM [Concomitant]
  4. BLOOD PRESSURE MEDICATION [Concomitant]
  5. FLOVENT [Suspect]
     Indication: ASTHMA
     Dosage: 1PUFF TWICE PER DAY
     Route: 065
     Dates: start: 20110101, end: 20110101

REACTIONS (1)
  - COUGH [None]
